FAERS Safety Report 7752120-1 (Version None)
Quarter: 2011Q3

REPORT INFORMATION
  Report Type: 
  Country: None (occurrence: None)
  Receive Date: 20110915
  Receipt Date: 20100630
  Transmission Date: 20111222
  Serious: No
  Sender: FDA-Public Use
  Company Number: US-BAYER-201028527NA

PATIENT
  Age: 50 Year
  Sex: Female
  Weight: 58.503 kg

DRUGS (2)
  1. IMITREX [Concomitant]
     Indication: MIGRAINE
     Dosage: 9 PER MONTH
  2. MIRENA [Suspect]
     Indication: MENORRHAGIA
     Dosage: 20 ?G/D, CONT
     Route: 015
     Dates: start: 20090901, end: 20100629

REACTIONS (4)
  - VAGINAL HAEMORRHAGE [None]
  - WEIGHT INCREASED [None]
  - AMENORRHOEA [None]
  - MIGRAINE [None]
